FAERS Safety Report 22259135 (Version 3)
Quarter: 2023Q2

REPORT INFORMATION
  Report Type: Report from Study
  Country: FR (occurrence: FR)
  Receive Date: 20230427
  Receipt Date: 20230519
  Transmission Date: 20230722
  Serious: Yes (Life-Threatening, Hospitalization, Other)
  Sender: FDA-Public Use
  Company Number: FR-JNJFOC-20230447796

PATIENT
  Age: 18 Year
  Sex: Male

DRUGS (12)
  1. SPRAVATO [Suspect]
     Active Substance: ESKETAMINE
     Indication: Product used for unknown indication
     Dates: start: 20230310
  2. SPRAVATO [Suspect]
     Active Substance: ESKETAMINE
     Dates: start: 20230412
  3. CLOMIPRAMINE [Concomitant]
     Active Substance: CLOMIPRAMINE
     Dates: start: 20230309
  4. EFFEXOR [Concomitant]
     Active Substance: VENLAFAXINE HYDROCHLORIDE
  5. ZYPREXA [Concomitant]
     Active Substance: OLANZAPINE
  6. TERALITHE [Concomitant]
     Active Substance: LITHIUM CARBONATE
  7. MIANSERIN HYDROCHLORIDE [Concomitant]
     Active Substance: MIANSERIN HYDROCHLORIDE
  8. REVIA [Concomitant]
     Active Substance: NALTREXONE HYDROCHLORIDE
  9. NICOTINE [Concomitant]
     Active Substance: NICOTINE
  10. NICORETTE [Concomitant]
     Active Substance: NICOTINE
  11. IMOVANE [Concomitant]
     Active Substance: ZOPICLONE
  12. PARAFFIN OIL [Concomitant]

REACTIONS (2)
  - Suicide attempt [Recovering/Resolving]
  - Depression [Unknown]

NARRATIVE: CASE EVENT DATE: 20230101
